FAERS Safety Report 12381713 (Version 2)
Quarter: 2016Q2

REPORT INFORMATION
  Report Type: Spontaneous
  Country: US (occurrence: US)
  Receive Date: 20160518
  Receipt Date: 20160621
  Transmission Date: 20160815
  Serious: Yes (Hospitalization)
  Sender: FDA-Public Use
  Company Number: US-BAYER-2016-094391

PATIENT
  Age: 22 Year
  Sex: Female
  Weight: 65.76 kg

DRUGS (1)
  1. MIRENA [Suspect]
     Active Substance: LEVONORGESTREL
     Indication: CONTRACEPTION
     Dosage: 20 MCG/24HR, CONT
     Route: 015
     Dates: start: 20120821, end: 20141126

REACTIONS (5)
  - Pelvic pain [Not Recovered/Not Resolved]
  - Abdominal adhesions [None]
  - Uterine perforation [Not Recovered/Not Resolved]
  - Menorrhagia [None]
  - Dyspareunia [None]

NARRATIVE: CASE EVENT DATE: 201410
